FAERS Safety Report 8611312-X (Version None)
Quarter: 2012Q3

REPORT INFORMATION
  Report Type: 
  Country: None (occurrence: None)
  Receive Date: 20120822
  Receipt Date: 20120817
  Transmission Date: 20120928
  Serious: Yes (Death)
  Sender: FDA-Public Use
  Company Number: AU-PFIZER INC-2012203590

PATIENT
  Age: 69 Year
  Sex: Male

DRUGS (6)
  1. METFORMIN HCL [Concomitant]
  2. PANTOPRAZOLE [Suspect]
     Dosage: 40 MG, DAILY
     Route: 048
     Dates: start: 20120501, end: 20120619
  3. LASIX [Concomitant]
  4. FLUTICASONE PROPIONATE/SALMETEROL [Concomitant]
  5. ATENOLOL [Concomitant]
  6. ALPRAZOLAM [Suspect]

REACTIONS (1)
  - TOXIC EPIDERMAL NECROLYSIS [None]
